FAERS Safety Report 16614443 (Version 2)
Quarter: 2019Q3

REPORT INFORMATION
  Report Type: Spontaneous
  Country: CA (occurrence: CA)
  Receive Date: 20190723
  Receipt Date: 20190806
  Transmission Date: 20191004
  Serious: Yes (Other)
  Sender: FDA-Public Use
  Company Number: CA-PFIZER INC-2019291562

PATIENT
  Age: 62 Year
  Sex: Female

DRUGS (1)
  1. METHOTREXATE SODIUM. [Suspect]
     Active Substance: METHOTREXATE SODIUM
     Dosage: WEEKLY

REACTIONS (4)
  - Tooth infection [Not Recovered/Not Resolved]
  - Therapeutic product effect incomplete [Unknown]
  - Drug intolerance [Unknown]
  - Toothache [Not Recovered/Not Resolved]
